FAERS Safety Report 14914202 (Version 1)
Quarter: 2018Q2

REPORT INFORMATION
  Report Type: Spontaneous
  Country: US (occurrence: US)
  Receive Date: 20180501
  Receipt Date: 20180501
  Transmission Date: 20180711
  Serious: Yes (Disabling)
  Sender: FDA-Public Use
  Company Number: None

PATIENT
  Age: 36 Year
  Sex: Female
  Weight: 50.8 kg

DRUGS (2)
  1. KENALOG-40 [Suspect]
     Active Substance: TRIAMCINOLONE ACETONIDE
     Indication: SINUSITIS
     Dosage: ?          QUANTITY:ENTIRE VIAL;OTHER ROUTE:INJECTION?
  2. KENALOG-40 [Suspect]
     Active Substance: TRIAMCINOLONE ACETONIDE
     Indication: INFLUENZA
     Dosage: ?          QUANTITY:ENTIRE VIAL;OTHER ROUTE:INJECTION?

REACTIONS (4)
  - Stress [None]
  - Menorrhagia [None]
  - Menstruation irregular [None]
  - Premenstrual syndrome [None]

NARRATIVE: CASE EVENT DATE: 20180109
